FAERS Safety Report 17752339 (Version 1)
Quarter: 2020Q2

REPORT INFORMATION
  Report Type: Report from Study
  Country: BR (occurrence: BR)
  Receive Date: 20200506
  Receipt Date: 20200506
  Transmission Date: 20200714
  Serious: Yes (Death, Hospitalization, Other)
  Sender: FDA-Public Use
  Company Number: NVSC2020BR122835

PATIENT
  Age: 74 Year
  Sex: Male

DRUGS (1)
  1. ENTRESTO [Suspect]
     Active Substance: SACUBITRIL\VALSARTAN
     Indication: PRODUCT USED FOR UNKNOWN INDICATION
     Dosage: UNK (CONCENTRATION 49/51 OF UNKNOWN UNITS)
     Route: 065
     Dates: start: 20170713

REACTIONS (6)
  - Infection [Unknown]
  - Pneumonia [Fatal]
  - Suspected COVID-19 [Unknown]
  - Septic shock [Fatal]
  - Diabetes mellitus [Unknown]
  - Renal failure [Unknown]

NARRATIVE: CASE EVENT DATE: 20200401
